FAERS Safety Report 8155168 (Version 3)
Quarter: 2012Q4

REPORT INFORMATION
  Report Type: 
  Country: US (occurrence: US)
  Receive Date: 20110926
  Receipt Date: 20121217
  Transmission Date: 20130627
  Serious: Yes (Other)
  Sender: FDA-Public Use
  Company Number: US-JNJFOC-20110908804

PATIENT
  Sex: Female

DRUGS (1)
  1. LEVAQUIN [Suspect]
     Indication: INFECTION
     Route: 048
     Dates: start: 20090806, end: 20090815

REACTIONS (4)
  - Rotator cuff syndrome [Unknown]
  - Joint injury [Unknown]
  - Tendon disorder [Unknown]
  - Tendon disorder [Unknown]
